FAERS Safety Report 19180798 (Version 1)
Quarter: 2021Q2

REPORT INFORMATION
  Report Type: Spontaneous
  Country: BE (occurrence: BE)
  Receive Date: 20210426
  Receipt Date: 20210426
  Transmission Date: 20210717
  Serious: Yes (Other)
  Sender: FDA-Public Use
  Company Number: BE-DSJP-DSE-2021-112459

PATIENT
  Age: 79 Year
  Sex: Female

DRUGS (3)
  1. LIXIANA [Suspect]
     Active Substance: EDOXABAN TOSYLATE
     Dosage: 30 MG
     Route: 048
  2. LIXIANA [Suspect]
     Active Substance: EDOXABAN TOSYLATE
     Dosage: 15 MG, QD
     Route: 048
  3. LIXIANA [Suspect]
     Active Substance: EDOXABAN TOSYLATE
     Indication: ATRIAL FIBRILLATION
     Dosage: 30 MG
     Route: 048

REACTIONS (2)
  - Transient ischaemic attack [Unknown]
  - Renal impairment [Recovered/Resolved]

NARRATIVE: CASE EVENT DATE: 20210315
